FAERS Safety Report 5778113-1 (Version None)
Quarter: 2008Q2

REPORT INFORMATION
  Report Type: 
  Country: None (occurrence: None)
  Receive Date: 20080617
  Receipt Date: 20080617
  Transmission Date: 20081010
  Serious: Yes (Hospitalization, Other)
  Sender: FDA-Public Use
  Company Number: None

PATIENT
  Sex: Female
  Weight: 65 kg

DRUGS (1)
  1. MINOCYCLINE HCL [Suspect]
     Indication: ACNE
     Dosage: PO
     Route: 048

REACTIONS (3)
  - AUTOIMMUNE HEPATITIS [None]
  - HEPATIC FIBROSIS [None]
  - HEPATIC NECROSIS [None]
